FAERS Safety Report 5781660-X (Version None)
Quarter: 2008Q2

REPORT INFORMATION
  Report Type: 
  Country: None (occurrence: None)
  Receive Date: 20080623
  Receipt Date: 20080612
  Transmission Date: 20081010
  Serious: Yes (Death)
  Sender: FDA-Public Use
  Company Number: JP-ROCHE-569753

PATIENT
  Sex: Female
  Weight: 35 kg

DRUGS (3)
  1. ROCEPHIN [Suspect]
     Indication: SEPSIS
     Route: 041
     Dates: start: 20080603, end: 20080605
  2. LEVOFLOXACIN [Concomitant]
     Route: 048
     Dates: start: 20080602, end: 20080603
  3. NAPA [Concomitant]
     Route: 048
     Dates: start: 20080605, end: 20080606

REACTIONS (3)
  - ALTERED STATE OF CONSCIOUSNESS [None]
  - HYPOGLYCAEMIA [None]
  - SEPSIS [None]
